FAERS Safety Report 14038543 (Version 1)
Quarter: 2017Q4

REPORT INFORMATION
  Report Type: Spontaneous
  Country: BR (occurrence: BR)
  Receive Date: 20171004
  Receipt Date: 20171004
  Transmission Date: 20180321
  Serious: Yes (Other)
  Sender: FDA-Public Use
  Company Number: BR-ABBVIE-17P-020-2116601-00

PATIENT
  Sex: Male

DRUGS (2)
  1. ATAZANAVIR SULFATE. [Suspect]
     Active Substance: ATAZANAVIR SULFATE
     Indication: PROPHYLAXIS
     Route: 065
  2. NORVIR [Suspect]
     Active Substance: RITONAVIR
     Indication: PROPHYLAXIS
     Route: 048

REACTIONS (6)
  - Poisoning [Unknown]
  - Cushingoid [Unknown]
  - Lymphadenitis [Unknown]
  - Swelling face [Not Recovered/Not Resolved]
  - Fat redistribution [Not Recovered/Not Resolved]
  - Myalgia [Not Recovered/Not Resolved]
